FAERS Safety Report 5819101-6 (Version None)
Quarter: 2008Q3

REPORT INFORMATION
  Report Type: 
  Country: None (occurrence: None)
  Receive Date: 20080721
  Receipt Date: 20080721
  Transmission Date: 20090109
  Serious: No
  Sender: FDA-Public Use
  Company Number: None

PATIENT
  Age: 60 Year
  Sex: Male
  Weight: 101.36 kg

DRUGS (2)
  1. WARFARIN SODIUM [Suspect]
     Indication: ATRIAL FIBRILLATION
     Dosage: 7.5 MG EVERY DAY PO
     Route: 048
     Dates: start: 20080502, end: 20080707
  2. FLUCONAZOLE [Suspect]
     Indication: ONYCHOMYCOSIS
     Dosage: 200 MG EVERY DAY PO
     Route: 048
     Dates: start: 20080623, end: 20080707

REACTIONS (3)
  - ALCOHOL USE [None]
  - INTERNATIONAL NORMALISED RATIO INCREASED [None]
  - TREATMENT NONCOMPLIANCE [None]
